FAERS Safety Report 20999922 (Version 1)
Quarter: 2022Q2

REPORT INFORMATION
  Report Type: Spontaneous
  Country: US (occurrence: None)
  Receive Date: 20220623
  Receipt Date: 20220623
  Transmission Date: 20220721
  Serious: Yes (Disabling)
  Sender: FDA-Public Use
  Company Number: None

PATIENT
  Age: 23 Year
  Sex: Female
  Weight: 67.5 kg

DRUGS (2)
  1. ACYCLOVIR [Suspect]
     Active Substance: ACYCLOVIR
     Indication: Genital herpes
  2. VALACYCLOVIR [Suspect]
     Active Substance: VALACYCLOVIR HYDROCHLORIDE

REACTIONS (6)
  - Drug ineffective [None]
  - Pain [None]
  - Vertigo [None]
  - Depression [None]
  - Quality of life decreased [None]
  - Impaired work ability [None]

NARRATIVE: CASE EVENT DATE: 20220217
